FAERS Safety Report 13883502 (Version 1)
Quarter: 2017Q3

REPORT INFORMATION
  Report Type: Spontaneous
  Country: GB (occurrence: GB)
  Receive Date: 20170818
  Receipt Date: 20170818
  Transmission Date: 20171127
  Serious: Yes (Hospitalization)
  Sender: FDA-Public Use
  Company Number: GB-TEVA-795981ACC

PATIENT
  Age: 79 Year
  Weight: 88.1 kg

DRUGS (8)
  1. APIXABAN [Suspect]
     Active Substance: APIXABAN
     Indication: ATRIAL FIBRILLATION
     Dosage: 5 MILLIGRAM DAILY;
     Route: 048
  2. FOLIC ACID. [Concomitant]
     Active Substance: FOLIC ACID
  3. ALLOPURINOL. [Concomitant]
     Active Substance: ALLOPURINOL
  4. BUMETANIDE. [Concomitant]
     Active Substance: BUMETANIDE
  5. LISINOPRIL. [Concomitant]
     Active Substance: LISINOPRIL
  6. CLINDAMYCIN HYDROCHLORIDE. [Suspect]
     Active Substance: CLINDAMYCIN HYDROCHLORIDE
     Indication: INFECTION
     Dosage: 1200 MILLIGRAM DAILY;
     Route: 048
     Dates: start: 20170707
  7. PRAVASTATIN. [Concomitant]
     Active Substance: PRAVASTATIN
  8. THIAMINE. [Concomitant]
     Active Substance: THIAMINE

REACTIONS (4)
  - Swelling [Unknown]
  - Pruritus [Unknown]
  - Dysphonia [Unknown]
  - Urticaria [Not Recovered/Not Resolved]
